FAERS Safety Report 9192975 (Version 1)
Quarter: 2013Q1

REPORT INFORMATION
  Report Type: Spontaneous
  Country: BE (occurrence: BE)
  Receive Date: 20130327
  Receipt Date: 20130327
  Transmission Date: 20140127
  Serious: Yes (Other)
  Sender: FDA-Public Use
  Company Number: PHHY2013BE028544

PATIENT
  Age: 59 Year
  Sex: Male

DRUGS (10)
  1. ACLASTA [Suspect]
     Indication: OSTEOPOROSIS
     Dosage: 5 MG, YEARLY
     Route: 042
     Dates: start: 200902
  2. ACLASTA [Suspect]
     Dosage: 5 MG, YEARLY
     Route: 042
  3. ACLASTA [Suspect]
     Dosage: 5 MG, YEARLY
     Route: 042
     Dates: start: 201102
  4. MEDROL [Concomitant]
  5. ASAFLOW [Concomitant]
  6. SYMBICORT [Concomitant]
  7. MATRIFEN [Concomitant]
  8. INEGY [Concomitant]
  9. ZANTAC [Concomitant]
  10. VALDOXAN [Concomitant]

REACTIONS (6)
  - Osteonecrosis of jaw [Recovering/Resolving]
  - Pain in jaw [Recovering/Resolving]
  - Infection [Recovering/Resolving]
  - Hypoaesthesia oral [Recovering/Resolving]
  - Purulent discharge [Unknown]
  - Bone disorder [Unknown]
